FAERS Safety Report 9052382 (Version 1)
Quarter: 2013Q1

REPORT INFORMATION
  Report Type: Spontaneous
  Country: US (occurrence: US)
  Receive Date: 20130207
  Receipt Date: 20130207
  Transmission Date: 20140127
  Serious: No
  Sender: FDA-Public Use
  Company Number: US-PFIZER INC-2013050748

PATIENT
  Age: 43 Year
  Sex: Female
  Weight: 98.88 kg

DRUGS (1)
  1. MOTRIN IB [Suspect]
     Dosage: UNK, 200 MG

REACTIONS (1)
  - Dyspepsia [Unknown]
